FAERS Safety Report 6368731-4 (Version None)
Quarter: 2009Q3

REPORT INFORMATION
  Report Type: 
  Country: None (occurrence: None)
  Receive Date: 20090917
  Receipt Date: 20090917
  Transmission Date: 20100115
  Serious: Yes (Hospitalization)
  Sender: FDA-Public Use
  Company Number: None

PATIENT
  Age: 44 Year
  Sex: Female
  Weight: 58.9676 kg

DRUGS (1)
  1. CIPROFLOXACIN HCL [Suspect]
     Indication: CYSTITIS
     Dosage: 1 PILL EVERY 12 HRS ORAL
     Route: 048
     Dates: start: 20090818, end: 20090821

REACTIONS (6)
  - BURNING SENSATION [None]
  - CONFUSIONAL STATE [None]
  - FACIAL PALSY [None]
  - HYPOAESTHESIA [None]
  - HYPOAESTHESIA FACIAL [None]
  - VISUAL IMPAIRMENT [None]
